FAERS Safety Report 7272675-3 (Version None)
Quarter: 2011Q1

REPORT INFORMATION
  Report Type: 
  Country: None (occurrence: None)
  Receive Date: 20110203
  Receipt Date: 20110126
  Transmission Date: 20110831
  Serious: Yes (Hospitalization, Other)
  Sender: FDA-Public Use
  Company Number: US-B.I. PHARMACEUTICALS,INC./RIDGEFIELD-2011-BP-01640BP

PATIENT
  Age: 81 Year
  Sex: Male

DRUGS (13)
  1. DIGOXIN [Concomitant]
  2. PROTONIX [Concomitant]
  3. VITAMIN D [Concomitant]
  4. SYNTHROID [Concomitant]
  5. PRADAXA [Suspect]
     Indication: ATRIAL FIBRILLATION
     Dosage: 300 MG
     Route: 048
     Dates: start: 20110119, end: 20110122
  6. MULTAQ [Concomitant]
  7. STEROIDS [Concomitant]
  8. ALDACTONE [Concomitant]
  9. PROVENTIL [Concomitant]
  10. FLUCONAZOLE [Concomitant]
     Dates: end: 20110122
  11. FLOMAX [Concomitant]
  12. CEFTIN [Concomitant]
     Dates: end: 20110120
  13. ZOCOR [Concomitant]

REACTIONS (8)
  - ACTIVATED PARTIAL THROMBOPLASTIN TIME PROLONGED [None]
  - BLOOD URINE PRESENT [None]
  - HAEMATOCRIT DECREASED [None]
  - PROTHROMBIN TIME PROLONGED [None]
  - BLOOD CREATININE INCREASED [None]
  - RENAL FAILURE ACUTE [None]
  - BLOOD POTASSIUM INCREASED [None]
  - BLOOD UREA INCREASED [None]
